FAERS Safety Report 7209839-0 (Version None)
Quarter: 2011Q1

REPORT INFORMATION
  Report Type: 
  Country: None (occurrence: None)
  Receive Date: 20110104
  Receipt Date: 20101231
  Transmission Date: 20110831
  Serious: Yes (Death)
  Sender: FDA-Public Use
  Company Number: US-ASTRAZENECA-2010SE61492

PATIENT
  Age: 23 Year
  Sex: Male

DRUGS (3)
  1. QUETIAPINE [Suspect]
     Route: 048
  2. ETHANOL [Suspect]
     Route: 048
  3. MERCURY [Suspect]
     Route: 048

REACTIONS (8)
  - RESPIRATORY FAILURE [None]
  - BLOOD PRESSURE DECREASED [None]
  - NAUSEA [None]
  - TOXICITY TO VARIOUS AGENTS [None]
  - ABDOMINAL PAIN [None]
  - RESPIRATORY DISTRESS [None]
  - VOMITING [None]
  - METAL POISONING [None]
